FAERS Safety Report 6832790-2 (Version None)
Quarter: 2010Q3

REPORT INFORMATION
  Report Type: 
  Country: None (occurrence: None)
  Receive Date: 20100712
  Receipt Date: 20070321
  Transmission Date: 20110219
  Serious: No
  Sender: FDA-Public Use
  Company Number: US-PFIZER INC-2007023800

PATIENT
  Sex: Female
  Weight: 73.94 kg

DRUGS (14)
  1. CHANTIX [Suspect]
     Indication: SMOKING CESSATION THERAPY
     Dates: start: 20070101, end: 20070301
  2. OXYCONTIN [Concomitant]
  3. METHADONE HCL [Concomitant]
  4. NORCO [Concomitant]
  5. ALL OTHER NON-THERAPEUTIC PRODUCTS [Concomitant]
  6. PROVIGIL [Concomitant]
  7. MIDRIN [Concomitant]
  8. CYMBALTA [Concomitant]
  9. LACTULOSE [Concomitant]
  10. ALOES [Concomitant]
  11. TOPICAL PRODUCTS FOR JOINT AND MUSCULAR PAIN [Concomitant]
  12. ATIVAN [Concomitant]
  13. AMBIEN [Concomitant]
  14. BENGAY ORIGINAL [Concomitant]

REACTIONS (4)
  - CIRCADIAN RHYTHM SLEEP DISORDER [None]
  - DEPRESSED MOOD [None]
  - HEADACHE [None]
  - STRESS [None]
